FAERS Safety Report 17383007 (Version 1)
Quarter: 2020Q1

REPORT INFORMATION
  Report Type: Spontaneous
  Country: US (occurrence: US)
  Receive Date: 20200206
  Receipt Date: 20200206
  Transmission Date: 20200409
  Serious: No
  Sender: FDA-Public Use
  Company Number: US-ABBVIE-19K-163-2970303-00

PATIENT
  Age: 75 Year
  Sex: Female

DRUGS (1)
  1. HUMIRA [Suspect]
     Active Substance: ADALIMUMAB
     Indication: PSORIATIC ARTHROPATHY
     Route: 058
     Dates: start: 20190924

REACTIONS (8)
  - Respiratory disorder [Unknown]
  - Eye swelling [Unknown]
  - Lip swelling [Unknown]
  - Injection site erythema [Unknown]
  - Wrong technique in product usage process [Unknown]
  - Cough [Unknown]
  - Incorrect dose administered [Unknown]
  - Nasal oedema [Unknown]

NARRATIVE: CASE EVENT DATE: 2019
